FAERS Safety Report 25090618 (Version 1)
Quarter: 2025Q1

REPORT INFORMATION
  Report Type: Report from Study
  Country: CA (occurrence: CA)
  Receive Date: 20250318
  Receipt Date: 20250318
  Transmission Date: 20250408
  Serious: Yes (Other)
  Sender: ABBVIE
  Company Number: CA-ABBVIE-6174691

PATIENT
  Age: 75 Year
  Sex: Male

DRUGS (78)
  1. VENETOCLAX [Suspect]
     Active Substance: VENETOCLAX
     Indication: Acute myeloid leukaemia
     Route: 048
     Dates: start: 20230606, end: 20230711
  2. VENETOCLAX [Suspect]
     Active Substance: VENETOCLAX
     Indication: Acute myeloid leukaemia
     Route: 048
     Dates: start: 20230711, end: 20230808
  3. VENETOCLAX [Suspect]
     Active Substance: VENETOCLAX
     Indication: Acute myeloid leukaemia
     Route: 048
     Dates: start: 20230810, end: 20230815
  4. VENETOCLAX [Suspect]
     Active Substance: VENETOCLAX
     Indication: Acute myeloid leukaemia
     Route: 048
     Dates: start: 20230820, end: 20230824
  5. VENETOCLAX [Suspect]
     Active Substance: VENETOCLAX
     Indication: Acute myeloid leukaemia
     Route: 048
     Dates: start: 20230818, end: 20230819
  6. VENETOCLAX [Suspect]
     Active Substance: VENETOCLAX
     Indication: Acute myeloid leukaemia
     Route: 048
     Dates: start: 20230920, end: 20231003
  7. VENETOCLAX [Suspect]
     Active Substance: VENETOCLAX
     Indication: Acute myeloid leukaemia
     Route: 048
     Dates: start: 20231030, end: 20231105
  8. ONDANSETRON [Concomitant]
     Active Substance: ONDANSETRON
     Indication: Nausea
     Route: 048
     Dates: start: 20230816
  9. FILGRASTIM [Concomitant]
     Active Substance: FILGRASTIM
     Indication: Neutropenia
     Dosage: (NIVESTYM),
     Route: 058
     Dates: start: 20230817, end: 20230817
  10. FILGRASTIM [Concomitant]
     Active Substance: FILGRASTIM
     Indication: Neutropenia
     Route: 058
     Dates: start: 20230818, end: 20230823
  11. MAGNESIUM SULFATE [Concomitant]
     Active Substance: MAGNESIUM SULFATE
     Indication: Neutropenia
     Route: 042
     Dates: start: 20230817, end: 20230817
  12. MAGNESIUM SULFATE [Concomitant]
     Active Substance: MAGNESIUM SULFATE
     Indication: Neutropenia
     Route: 042
     Dates: start: 20230817, end: 20230911
  13. MAGNESIUM SULFATE [Concomitant]
     Active Substance: MAGNESIUM SULFATE
     Indication: Neutropenia
     Route: 042
     Dates: start: 20231201, end: 20231201
  14. MAGNESIUM SULFATE [Concomitant]
     Active Substance: MAGNESIUM SULFATE
     Indication: Neutropenia
     Route: 042
     Dates: start: 20230817, end: 20230911
  15. MAGNESIUM SULFATE [Concomitant]
     Active Substance: MAGNESIUM SULFATE
     Indication: Neutropenia
     Route: 042
     Dates: start: 20231130, end: 20231203
  16. FUROSEMIDE [Concomitant]
     Active Substance: FUROSEMIDE
     Indication: Cardiac failure
     Route: 042
     Dates: start: 20231130, end: 20231130
  17. HYDRALAZINE [Concomitant]
     Active Substance: HYDRALAZINE HYDROCHLORIDE
     Indication: Cardiac failure
     Route: 042
     Dates: start: 20231127, end: 20231202
  18. ACETAMINOPHEN [Concomitant]
     Active Substance: ACETAMINOPHEN
     Indication: Neutropenia
     Route: 048
     Dates: start: 20230816, end: 20230816
  19. ACETAMINOPHEN [Concomitant]
     Active Substance: ACETAMINOPHEN
     Indication: Neutropenia
     Route: 048
     Dates: start: 20230817, end: 20230817
  20. ACETAMINOPHEN [Concomitant]
     Active Substance: ACETAMINOPHEN
     Indication: Neutropenia
     Route: 048
     Dates: start: 20230817, end: 20230826
  21. SODIUM CHLORIDE [Concomitant]
     Active Substance: SODIUM CHLORIDE
     Indication: Neutropenia
     Dosage: 0.9%
     Route: 040
     Dates: start: 20230816
  22. SODIUM CHLORIDE [Concomitant]
     Active Substance: SODIUM CHLORIDE
     Indication: Neutropenia
     Route: 042
     Dates: start: 20231130, end: 20231203
  23. SODIUM CHLORIDE [Concomitant]
     Active Substance: SODIUM CHLORIDE
     Indication: Neutropenia
     Dosage: FLUSH INJECTION
     Route: 042
     Dates: start: 20231124, end: 20231203
  24. SODIUM CHLORIDE [Concomitant]
     Active Substance: SODIUM CHLORIDE
     Indication: Neutropenia
     Route: 042
     Dates: start: 20230825, end: 20230910
  25. CEFTRIAXONE [Concomitant]
     Active Substance: CEFTRIAXONE
     Indication: Neutropenia
     Route: 042
     Dates: start: 20230816, end: 20230816
  26. PIPERACILLIN AND TAZOBACTAM [Concomitant]
     Active Substance: PIPERACILLIN SODIUM\TAZOBACTAM SODIUM
     Indication: Neutropenia
     Route: 042
     Dates: start: 20230816, end: 20230816
  27. PIPERACILLIN AND TAZOBACTAM [Concomitant]
     Active Substance: PIPERACILLIN SODIUM\TAZOBACTAM SODIUM
     Indication: Neutropenia
     Route: 042
     Dates: start: 20230816, end: 20230822
  28. PIPERACILLIN AND TAZOBACTAM [Concomitant]
     Active Substance: PIPERACILLIN SODIUM\TAZOBACTAM SODIUM
     Indication: Neutropenia
     Route: 042
     Dates: start: 20230816, end: 20230822
  29. PIPERACILLIN AND TAZOBACTAM [Concomitant]
     Active Substance: PIPERACILLIN SODIUM\TAZOBACTAM SODIUM
     Indication: Neutropenia
     Route: 042
     Dates: start: 20230911, end: 20230918
  30. POTASSIUM CHLORIDE [Concomitant]
     Active Substance: POTASSIUM CHLORIDE
     Indication: Neutropenia
     Route: 042
     Dates: start: 20230817, end: 20230817
  31. POTASSIUM CHLORIDE [Concomitant]
     Active Substance: POTASSIUM CHLORIDE
     Indication: Neutropenia
     Dates: start: 20230819, end: 20230819
  32. POTASSIUM CHLORIDE [Concomitant]
     Active Substance: POTASSIUM CHLORIDE
     Indication: Neutropenia
     Dates: start: 20230819, end: 20230819
  33. POTASSIUM CHLORIDE [Concomitant]
     Active Substance: POTASSIUM CHLORIDE
     Indication: Neutropenia
     Dosage: OG TUBE
     Dates: start: 20231201, end: 20231201
  34. POTASSIUM CHLORIDE [Concomitant]
     Active Substance: POTASSIUM CHLORIDE
     Indication: Neutropenia
     Route: 048
     Dates: start: 20230819, end: 20230819
  35. POTASSIUM CHLORIDE [Concomitant]
     Active Substance: POTASSIUM CHLORIDE
     Indication: Neutropenia
     Route: 048
     Dates: start: 20230906, end: 20230908
  36. POTASSIUM CHLORIDE [Concomitant]
     Active Substance: POTASSIUM CHLORIDE
     Indication: Neutropenia
     Route: 048
     Dates: start: 20230904, end: 20230906
  37. VALACYCLOVIR [Concomitant]
     Active Substance: VALACYCLOVIR HYDROCHLORIDE
     Indication: Neutropenia
     Route: 048
     Dates: start: 20230817, end: 20230830
  38. VALACYCLOVIR [Concomitant]
     Active Substance: VALACYCLOVIR HYDROCHLORIDE
     Indication: Neutropenia
     Dosage: OG-TUBE
     Dates: start: 20231128, end: 20231203
  39. IOHEXOL [Concomitant]
     Active Substance: IOHEXOL
     Indication: Neutropenia
     Route: 042
     Dates: start: 20230817, end: 20230817
  40. BISACODYL [Concomitant]
     Active Substance: BISACODYL
     Indication: Constipation prophylaxis
     Route: 054
     Dates: start: 20231130, end: 20231130
  41. POLYETHYLENE GLYCOL [Concomitant]
     Active Substance: POLYETHYLENE GLYCOL
     Indication: Constipation prophylaxis
     Dosage: OG-TUBE
     Dates: start: 20231130, end: 20231130
  42. FENTANYL [Concomitant]
     Active Substance: FENTANYL
     Indication: Respiratory failure
     Dosage: 0-5 MCG/H, CONTINUOS
     Route: 042
     Dates: start: 20231203, end: 20231203
  43. NOREPINEPHRINE [Concomitant]
     Active Substance: NOREPINEPHRINE
     Indication: Hypotension
     Route: 042
     Dates: start: 20231124, end: 20231126
  44. OXYGEN [Concomitant]
     Active Substance: OXYGEN
     Indication: Hypoxia
     Route: 055
     Dates: start: 20230827, end: 20230914
  45. AZACITIDINE [Suspect]
     Active Substance: AZACITIDINE
     Indication: Acute myeloid leukaemia
     Route: 065
     Dates: start: 20230605, end: 20230611
  46. AZACITIDINE [Suspect]
     Active Substance: AZACITIDINE
     Indication: Acute myeloid leukaemia
     Route: 065
     Dates: start: 20230713, end: 20230719
  47. AZACITIDINE [Suspect]
     Active Substance: AZACITIDINE
     Indication: Acute myeloid leukaemia
     Route: 065
     Dates: start: 20230810, end: 20230815
  48. AZACITIDINE [Suspect]
     Active Substance: AZACITIDINE
     Indication: Acute myeloid leukaemia
     Route: 065
     Dates: start: 20230920, end: 20230926
  49. AZACITIDINE [Suspect]
     Active Substance: AZACITIDINE
     Indication: Acute myeloid leukaemia
     Route: 065
     Dates: start: 20231031, end: 20231106
  50. POSACONAZOLE [Concomitant]
     Active Substance: POSACONAZOLE
     Indication: Neutropenia
     Dosage: DELAYED RELEASE TABLET
     Route: 048
     Dates: start: 20230819, end: 20230820
  51. POSACONAZOLE [Concomitant]
     Active Substance: POSACONAZOLE
     Indication: Neutropenia
     Dosage: DELAYED RELEASE TABLET
     Route: 048
     Dates: start: 20230820, end: 20230906
  52. DIGOXIN [Concomitant]
     Active Substance: DIGOXIN
     Indication: Atrial fibrillation
     Route: 042
     Dates: start: 20230823, end: 20230823
  53. DIGOXIN [Concomitant]
     Active Substance: DIGOXIN
     Indication: Atrial fibrillation
     Route: 048
     Dates: start: 20230824, end: 20230921
  54. DIGOXIN [Concomitant]
     Active Substance: DIGOXIN
     Indication: Atrial fibrillation
     Route: 042
     Dates: start: 20230823, end: 20230823
  55. POTASSIUM CITRATE [Concomitant]
     Active Substance: POTASSIUM CITRATE
     Indication: Neutropenia
     Dosage: EFFERVESCENT TABLET
     Route: 048
     Dates: start: 20230824, end: 20230824
  56. ISAVUCONAZOLE [Concomitant]
     Active Substance: ISAVUCONAZOLE
     Indication: Bronchopulmonary aspergillosis
     Dosage: AS NEEDED
     Route: 042
     Dates: start: 20231130, end: 20231202
  57. ACETAZOLAMIDE [Concomitant]
     Active Substance: ACETAZOLAMIDE
     Indication: Respiratory failure
     Dosage: OG-TUBE
     Dates: start: 20231201, end: 20231203
  58. PROPOFOL [Concomitant]
     Active Substance: PROPOFOL
     Indication: Respiratory failure
     Route: 042
     Dates: start: 20231130, end: 20231203
  59. SENNOSIDES [Concomitant]
     Active Substance: SENNOSIDES
     Indication: Constipation prophylaxis
     Dosage: OG-TUBE
     Dates: start: 20231130, end: 20231203
  60. METOPROLOL [Concomitant]
     Active Substance: METOPROLOL
     Indication: Atrial fibrillation
     Route: 048
     Dates: start: 20230819, end: 20230821
  61. METOPROLOL [Concomitant]
     Active Substance: METOPROLOL
     Indication: Atrial fibrillation
     Route: 048
     Dates: start: 20230818, end: 20230818
  62. METOPROLOL [Concomitant]
     Active Substance: METOPROLOL
     Indication: Atrial fibrillation
     Dosage: OG-TUBE
     Dates: start: 20231130, end: 20231203
  63. METOPROLOL [Concomitant]
     Active Substance: METOPROLOL
     Indication: Atrial fibrillation
     Route: 048
     Dates: start: 20230822, end: 20230826
  64. METOPROLOL [Concomitant]
     Active Substance: METOPROLOL
     Indication: Atrial fibrillation
     Route: 048
     Dates: start: 20230826, end: 20230827
  65. METOPROLOL [Concomitant]
     Active Substance: METOPROLOL
     Indication: Atrial fibrillation
     Route: 048
     Dates: start: 20230827, end: 20230922
  66. VENETOCLAX [Concomitant]
     Active Substance: VENETOCLAX
     Indication: Neutropenia
     Route: 048
     Dates: start: 20230818, end: 20230819
  67. VENETOCLAX [Concomitant]
     Active Substance: VENETOCLAX
     Indication: Neutropenia
     Route: 048
     Dates: start: 20230822, end: 20230824
  68. LACTATED RINGERS SOLUTION [Concomitant]
     Active Substance: CALCIUM CHLORIDE\POTASSIUM CHLORIDE\SODIUM CHLORIDE\SODIUM LACTATE
     Indication: Neutropenia
     Route: 042
     Dates: start: 20230820, end: 20230820
  69. LACTATED RINGERS SOLUTION [Concomitant]
     Active Substance: CALCIUM CHLORIDE\POTASSIUM CHLORIDE\SODIUM CHLORIDE\SODIUM LACTATE
     Indication: Neutropenia
     Route: 042
     Dates: start: 20230820, end: 20230821
  70. VANCOMYCIN [Concomitant]
     Active Substance: VANCOMYCIN
     Indication: Neutropenia
     Route: 042
     Dates: start: 20230822, end: 20230907
  71. MEROPENEM [Concomitant]
     Active Substance: MEROPENEM
     Indication: Neutropenia
     Route: 042
     Dates: start: 20230824, end: 20230907
  72. MEROPENEM [Concomitant]
     Active Substance: MEROPENEM
     Indication: Neutropenia
     Route: 042
     Dates: start: 20230822, end: 20230824
  73. MEROPENEM [Concomitant]
     Active Substance: MEROPENEM
     Indication: Neutropenia
     Route: 042
     Dates: start: 20231130, end: 20231203
  74. IPRATROPIUM [Concomitant]
     Active Substance: IPRATROPIUM
     Indication: Respiratory failure
     Dosage: 8 PUFF
     Route: 055
     Dates: start: 20231130, end: 20231203
  75. LANSOPRAZOLE [Concomitant]
     Active Substance: LANSOPRAZOLE
     Indication: Gastrooesophageal reflux prophylaxis
     Dosage: OG-TUBE
     Dates: start: 20231130, end: 20231203
  76. MIDAZOLAM [Concomitant]
     Active Substance: MIDAZOLAM
     Indication: Product used for unknown indication
     Route: 042
     Dates: start: 20231203, end: 20231203
  77. SULFAMETHOXAZOLE [Concomitant]
     Active Substance: SULFAMETHOXAZOLE
     Indication: Pneumonia
     Dosage: TRIMET HOPRIM TABLET, OG-TUBE
     Dates: start: 20231127, end: 20231202
  78. TINZAPARIN [Concomitant]
     Active Substance: TINZAPARIN
     Indication: Thrombosis prophylaxis
     Dosage: 4500 UNITS QD
     Route: 058
     Dates: start: 20231124, end: 20231203

REACTIONS (1)
  - Respiratory failure [Not Recovered/Not Resolved]

NARRATIVE: CASE EVENT DATE: 20231123
